FAERS Safety Report 9056882 (Version 2)
Quarter: 2013Q2

REPORT INFORMATION
  Report Type: Spontaneous
  Country: FR (occurrence: FR)
  Receive Date: 20130201
  Receipt Date: 20130408
  Transmission Date: 20140414
  Serious: Yes (Other)
  Sender: FDA-Public Use
  Company Number: FR-GLAXOSMITHKLINE-B0861998A

PATIENT
  Age: 74 Year
  Sex: Male

DRUGS (9)
  1. REVOLADE [Suspect]
     Indication: IDIOPATHIC THROMBOCYTOPENIC PURPURA
     Route: 048
     Dates: start: 20120618, end: 20120926
  2. PREVISCAN [Concomitant]
     Dosage: 20MG PER DAY
  3. PLAVIX [Concomitant]
     Dosage: 75MG PER DAY
  4. VENTOLINE [Concomitant]
  5. OMEPRAZOLE [Concomitant]
  6. SERETIDE [Concomitant]
  7. SPIRIVA [Concomitant]
  8. FUROSEMIDE [Concomitant]
     Dosage: 60MG PER DAY
  9. LEVOTHYROX [Concomitant]
     Dosage: 50MCG PER DAY

REACTIONS (4)
  - Hyperaesthesia [Recovered/Resolved]
  - Paraesthesia [Recovered/Resolved]
  - Transaminases increased [Recovered/Resolved]
  - Gamma-glutamyltransferase increased [Recovered/Resolved]
